FAERS Safety Report 5786475-4 (Version None)
Quarter: 2008Q2

REPORT INFORMATION
  Report Type: 
  Country: None (occurrence: None)
  Receive Date: 20080624
  Receipt Date: 20080612
  Transmission Date: 20081010
  Serious: Yes (Hospitalization)
  Sender: FDA-Public Use
  Company Number: JP-PFIZER INC-2008040073

PATIENT
  Sex: Female

DRUGS (5)
  1. LIPITOR [Suspect]
     Indication: HYPERLIPIDAEMIA
     Dosage: DAILY DOSE:5MG
     Route: 048
     Dates: start: 20010510, end: 20080408
  2. AMLODIPINE [Suspect]
     Indication: HYPERTENSION
     Dosage: DAILY DOSE:2.5MG
     Route: 048
     Dates: start: 19980925, end: 20080408
  3. BUFFERIN [Concomitant]
     Dosage: DAILY DOSE:81MG
     Route: 048
     Dates: start: 20020201, end: 20080408
  4. BETAMETHASONE VALERATE [Concomitant]
     Dates: start: 20020201, end: 20080319
  5. FLUCORT [Concomitant]
     Dates: start: 20080116, end: 20080315

REACTIONS (4)
  - BLOOD CREATINE PHOSPHOKINASE INCREASED [None]
  - HEPATIC FUNCTION ABNORMAL [None]
  - HEPATOMEGALY [None]
  - OEDEMA PERIPHERAL [None]
